FAERS Safety Report 9356447 (Version 1)
Quarter: 2013Q2

REPORT INFORMATION
  Report Type: Spontaneous
  Country: US (occurrence: US)
  Receive Date: 20130619
  Receipt Date: 20130619
  Transmission Date: 20140414
  Serious: Yes (Other)
  Sender: FDA-Public Use
  Company Number: US-BRISTOL-MYERS SQUIBB COMPANY-19000033

PATIENT
  Age: 69 Year
  Sex: Female
  Weight: 70.75 kg

DRUGS (4)
  1. YERVOY [Suspect]
     Indication: MALIGNANT MELANOMA
     Dosage: 1 DF:225MG INFSN WITH ONE AND 227MG WITH THE OTHERS. ?LAST INF:19MAR13
     Dates: start: 201301
  2. PREDNISONE [Concomitant]
     Dosage: USED 80MG AND 60 MG PRVSLY
  3. ATIVAN [Concomitant]
  4. XANAX [Concomitant]

REACTIONS (16)
  - Bronchitis [Unknown]
  - Hypopituitarism [Unknown]
  - Hypertension [Unknown]
  - Headache [Unknown]
  - Pruritus generalised [Unknown]
  - Lichen planus [Unknown]
  - Dizziness [Unknown]
  - Flushing [Unknown]
  - Arthropathy [Unknown]
  - Hot flush [Unknown]
  - Muscle spasms [Unknown]
  - Paraesthesia [Unknown]
  - Rash [Unknown]
  - Nausea [Unknown]
  - Diarrhoea [Unknown]
  - Hyperthyroidism [Unknown]
